FAERS Safety Report 8286674-6 (Version None)
Quarter: 2012Q2

REPORT INFORMATION
  Report Type: 
  Country: None (occurrence: None)
  Receive Date: 20120416
  Receipt Date: 20120404
  Transmission Date: 20120825
  Serious: No
  Sender: FDA-Public Use
  Company Number: AU-JNJFOC-20120303207

PATIENT
  Sex: Female

DRUGS (4)
  1. HOMEOPATHIC PREPARATIONS [Concomitant]
     Route: 065
  2. REMICADE [Suspect]
     Indication: CROHN'S DISEASE
     Route: 042
     Dates: start: 20120305
  3. REMICADE [Suspect]
     Route: 042
     Dates: start: 20120201
  4. REMICADE [Suspect]
     Route: 042
     Dates: start: 20100101

REACTIONS (6)
  - NAUSEA [None]
  - PSORIASIS [None]
  - CROHN'S DISEASE [None]
  - VOMITING [None]
  - CANDIDIASIS [None]
  - INFLUENZA [None]
